FAERS Safety Report 5869193-3 (Version None)
Quarter: 2008Q3

REPORT INFORMATION
  Report Type: 
  Country: None (occurrence: None)
  Receive Date: 20080828
  Receipt Date: 20080812
  Transmission Date: 20090109
  Serious: Yes (Hospitalization)
  Sender: FDA-Public Use
  Company Number: 2008BI015431

PATIENT
  Age: 56 Year
  Sex: Male

DRUGS (11)
  1. TYSABRI [Suspect]
     Indication: MULTIPLE SCLEROSIS
     Dosage: 300 MG;QM;IV
     Route: 042
     Dates: start: 20080202
  2. ZANAFLEX [Concomitant]
  3. PRILOSEC [Concomitant]
  4. LEVOTHYROXINE SODIUM [Concomitant]
  5. LISINOPRIL [Concomitant]
  6. PROVIGIL [Concomitant]
  7. ASPIRIN [Concomitant]
  8. TYLENOL (CAPLET) [Concomitant]
  9. PEPCID [Concomitant]
  10. OXYBUTYNIN [Concomitant]
  11. CIPRO [Concomitant]

REACTIONS (23)
  - ASTHENIA [None]
  - BACTERIURIA [None]
  - BLOOD GLUCOSE DECREASED [None]
  - BLOOD PRESSURE SYSTOLIC INCREASED [None]
  - CONFUSIONAL STATE [None]
  - CONSTIPATION [None]
  - CONVERSION DISORDER [None]
  - CULTURE POSITIVE [None]
  - DEHYDRATION [None]
  - DEPRESSION [None]
  - DIZZINESS [None]
  - DRUG ABUSE [None]
  - DRUG INTERACTION [None]
  - ESCHERICHIA INFECTION [None]
  - FEELING ABNORMAL [None]
  - FEELING COLD [None]
  - HYPOTHERMIA [None]
  - KLEBSIELLA INFECTION [None]
  - MENTAL STATUS CHANGES [None]
  - PRESYNCOPE [None]
  - SYNCOPE [None]
  - UNRESPONSIVE TO STIMULI [None]
  - URINARY TRACT INFECTION [None]
